FAERS Safety Report 8313714-8 (Version None)
Quarter: 2012Q2

REPORT INFORMATION
  Report Type: 
  Country: None (occurrence: None)
  Receive Date: 20120426
  Receipt Date: 20120417
  Transmission Date: 20120825
  Serious: Yes (Other)
  Sender: FDA-Public Use
  Company Number: US-JNJFOC-20120409597

PATIENT
  Sex: Female

DRUGS (12)
  1. DOXORUBICIN HCL [Suspect]
     Dosage: X 4
     Route: 042
  2. PACLITAXEL [Suspect]
     Dosage: X 4
     Route: 042
  3. CYCLOPHOSPHAMIDE [Suspect]
     Dosage: X 4
     Route: 042
  4. PACLITAXEL [Suspect]
     Indication: BREAST CANCER
     Route: 042
  5. CYCLOPHOSPHAMIDE [Suspect]
     Dosage: X 4
     Route: 042
  6. DOXORUBICIN HCL [Suspect]
     Route: 042
  7. DOXORUBICIN HCL [Suspect]
     Indication: BREAST CANCER
     Dosage: X 4
     Route: 042
  8. CYCLOPHOSPHAMIDE [Suspect]
     Indication: BREAST CANCER
     Dosage: X 4
     Route: 042
  9. CYCLOPHOSPHAMIDE [Suspect]
     Route: 042
  10. PACLITAXEL [Suspect]
     Dosage: X 4
     Route: 042
  11. DOXORUBICIN HCL [Suspect]
     Dosage: X 4
     Route: 042
  12. PACLITAXEL [Suspect]
     Dosage: X 4
     Route: 042

REACTIONS (1)
  - SYNCOPE [None]
